FAERS Safety Report 15180472 (Version 3)
Quarter: 2018Q3

REPORT INFORMATION
  Report Type: Report from Study
  Country: BR (occurrence: BR)
  Receive Date: 20180723
  Receipt Date: 20180813
  Transmission Date: 20181010
  Serious: Yes (Other)
  Sender: FDA-Public Use
  Company Number: PHHY2018BR001794

PATIENT
  Age: 27 Year
  Sex: Male
  Weight: 66 kg

DRUGS (4)
  1. COSENTYX [Suspect]
     Active Substance: SECUKINUMAB
     Indication: ANKYLOSING SPONDYLITIS
     Dosage: 150 MG, QMO
     Route: 058
     Dates: start: 20171130
  2. COSENTYX [Suspect]
     Active Substance: SECUKINUMAB
     Dosage: 150 MG, QMO
     Route: 058
     Dates: start: 201802
  3. COSENTYX [Suspect]
     Active Substance: SECUKINUMAB
     Dosage: 150 MG, UNK
     Route: 058
     Dates: start: 20180521
  4. COSENTYX [Suspect]
     Active Substance: SECUKINUMAB
     Dosage: 150 MG, UNK
     Route: 058

REACTIONS (10)
  - Demyelination [Unknown]
  - Optic nerve disorder [Unknown]
  - Condition aggravated [Unknown]
  - Spinal pain [Recovering/Resolving]
  - Drug ineffective [Unknown]
  - Musculoskeletal stiffness [Recovering/Resolving]
  - Incorrect dose administered [Unknown]
  - Central nervous system lesion [Not Recovered/Not Resolved]
  - Device issue [Unknown]
  - Wrong technique in product usage process [Unknown]

NARRATIVE: CASE EVENT DATE: 20171207
